FAERS Safety Report 8804162 (Version 1)
Quarter: 2012Q4

REPORT INFORMATION
  Report Type: 
  Country: CN (occurrence: CN)
  Receive Date: 20120924
  Receipt Date: 20120924
  Transmission Date: 20130627
  Serious: Yes (Other)
  Sender: FDA-Public Use
  Company Number: CN-BAYER-2012-098020

PATIENT
  Age: 63 Year
  Sex: Female

DRUGS (1)
  1. AVELOX [Suspect]
     Dosage: 250 ml, QD
     Route: 042
     Dates: start: 20110330, end: 20110331

REACTIONS (1)
  - Delirium [Recovered/Resolved]
